FAERS Safety Report 26138669 (Version 1)
Quarter: 2025Q4

REPORT INFORMATION
  Report Type: Spontaneous
  Country: US (occurrence: US)
  Receive Date: 20251210
  Receipt Date: 20251210
  Transmission Date: 20260118
  Serious: No
  Sender: ADVANZ PHARMA
  Company Number: US-ADVANZ PHARMA-202512010769

PATIENT

DRUGS (1)
  1. HYDROXYCHLOROQUINE [Suspect]
     Active Substance: HYDROXYCHLOROQUINE
     Indication: Product used for unknown indication
     Dosage: UNK (SINCE ABOUT 5 MONTHS)
     Route: 065
     Dates: start: 2025

REACTIONS (2)
  - Dry eye [Unknown]
  - Photophobia [Unknown]

NARRATIVE: CASE EVENT DATE: 20250101
